FAERS Safety Report 13346329 (Version 2)
Quarter: 2017Q2

REPORT INFORMATION
  Report Type: Report from Study
  Country: None (occurrence: US)
  Receive Date: 20170317
  Receipt Date: 20170504
  Transmission Date: 20170830
  Serious: Yes (Hospitalization)
  Sender: FDA-Public Use
  Company Number: US-ABBVIE-17K-163-1906884-00

PATIENT
  Age: 61 Year
  Sex: Male
  Weight: 80.36 kg

DRUGS (2)
  1. POTASSIUM [Concomitant]
     Active Substance: POTASSIUM
     Indication: MUSCLE SPASMS
  2. HUMIRA [Suspect]
     Active Substance: ADALIMUMAB
     Indication: COLITIS ULCERATIVE
     Route: 058
     Dates: start: 20170117

REACTIONS (8)
  - Asthenia [Recovered/Resolved]
  - Clostridium difficile infection [Recovering/Resolving]
  - Haemoglobin decreased [Recovered/Resolved]
  - Rectal haemorrhage [Recovered/Resolved]
  - Hypotension [Recovered/Resolved]
  - Dehydration [Recovering/Resolving]
  - Colitis [Not Recovered/Not Resolved]
  - Muscle spasms [Not Recovered/Not Resolved]

NARRATIVE: CASE EVENT DATE: 201703
